FAERS Safety Report 9086394 (Version 1)
Quarter: 2013Q1

REPORT INFORMATION
  Report Type: Spontaneous
  Country: US (occurrence: US)
  Receive Date: 20130130
  Receipt Date: 20130130
  Transmission Date: 20140127
  Serious: Yes (Hospitalization)
  Sender: FDA-Public Use
  Company Number: US-ABBOTT-12P-163-0974404-00

PATIENT
  Age: 76 Year
  Sex: Female
  Weight: 45.85 kg

DRUGS (6)
  1. HUMIRA 40 MG/0.8 ML PEN [Suspect]
     Indication: CROHN^S DISEASE
     Dates: start: 2012
  2. HUMIRA 40 MG/0.8 ML PEN [Suspect]
     Dosage: SECOND DOSE ON DAY 15.
     Dates: start: 2012, end: 2012
  3. HUMIRA 40 MG/0.8 ML PEN [Suspect]
     Dosage: STARTING DOSE
     Dates: start: 201204, end: 201204
  4. OMEPRAZOLE [Concomitant]
     Indication: GASTROOESOPHAGEAL REFLUX DISEASE
  5. VITAMIN B 12 [Concomitant]
     Indication: PRODUCT USED FOR UNKNOWN INDICATION
  6. BIOTIN [Concomitant]
     Indication: PRODUCT USED FOR UNKNOWN INDICATION

REACTIONS (2)
  - Chest pain [Recovered/Resolved]
  - Vomiting [Recovered/Resolved]
